FAERS Safety Report 9200732 (Version 7)
Quarter: 2014Q1

REPORT INFORMATION
  Report Type: Report from Study
  Country: DE (occurrence: DE)
  Receive Date: 20130401
  Receipt Date: 20140324
  Transmission Date: 20141002
  Serious: Yes (Hospitalization, Other)
  Sender: FDA-Public Use
  Company Number: DE-BIOGENIDEC-2013BI015394

PATIENT
  Age: 42 Year
  Sex: Female
  Weight: 74 kg

DRUGS (2)
  1. TYSABRI [Suspect]
     Indication: MULTIPLE SCLEROSIS
     Route: 042
     Dates: start: 20080130, end: 20130207
  2. THYROXIN-JODID [Concomitant]
     Indication: HYPOTHYROIDISM

REACTIONS (6)
  - Progressive multifocal leukoencephalopathy [Recovered/Resolved]
  - JC virus infection [Not Recovered/Not Resolved]
  - Gait disturbance [Unknown]
  - Vertigo [Unknown]
  - Gastritis [Recovered/Resolved]
  - Vomiting [Unknown]
